FAERS Safety Report 9049876 (Version 1)
Quarter: 2013Q1

REPORT INFORMATION
  Report Type: Spontaneous
  Country: US (occurrence: US)
  Receive Date: 20130205
  Receipt Date: 20130205
  Transmission Date: 20140127
  Serious: No
  Sender: FDA-Public Use
  Company Number: US-PFIZER INC-2013044978

PATIENT
  Age: 12 Month
  Sex: Male
  Weight: 10.88 kg

DRUGS (2)
  1. CHILDRENS ADVIL [Suspect]
     Indication: PAIN
     Dosage: UNK, ONCE A DAY
     Route: 048
     Dates: start: 20130107, end: 20130109
  2. CHILDRENS ADVIL [Suspect]
     Indication: PYREXIA

REACTIONS (3)
  - Drug administered to patient of inappropriate age [Unknown]
  - Abnormal behaviour [Unknown]
  - Rash [Unknown]
